FAERS Safety Report 7095226-5 (Version None)
Quarter: 2010Q4

REPORT INFORMATION
  Report Type: 
  Country: None (occurrence: None)
  Receive Date: 20101111
  Receipt Date: 20101014
  Transmission Date: 20110411
  Serious: Yes (Hospitalization)
  Sender: FDA-Public Use
  Company Number: US-BAYER-201016061NA

PATIENT
  Age: 52 Year
  Sex: Female

DRUGS (5)
  1. YAZ [Suspect]
     Indication: PRODUCT USED FOR UNKNOWN INDICATION
     Route: 048
  2. YASMIN [Suspect]
     Indication: PRODUCT USED FOR UNKNOWN INDICATION
     Route: 048
  3. INDERAL [Concomitant]
     Indication: MIGRAINE
  4. ASCORBIC ACID [Concomitant]
  5. ALTACE [Concomitant]
     Indication: HYPERTENSION
     Dates: start: 20030101

REACTIONS (1)
  - MYOCARDIAL INFARCTION [None]
